FAERS Safety Report 12457782 (Version 1)
Quarter: 2016Q2

REPORT INFORMATION
  Report Type: Report from Study
  Country: CA (occurrence: CA)
  Receive Date: 20160611
  Receipt Date: 20160611
  Transmission Date: 20160815
  Serious: Yes (Hospitalization)
  Sender: FDA-Public Use
  Company Number: CA-AMGEN-CANSL2016072686

PATIENT
  Age: 87 Year
  Sex: Female

DRUGS (2)
  1. NEUPOGEN [Suspect]
     Active Substance: FILGRASTIM
     Indication: PRODUCT USED FOR UNKNOWN INDICATION
     Dosage: UNK, 10 VIALS FOR THEIR 3RD CYCLE
     Route: 065
  2. NEULASTA [Suspect]
     Active Substance: PEGFILGRASTIM
     Indication: PRODUCT USED FOR UNKNOWN INDICATION
     Dosage: 10MG/1.0ML,
     Route: 065
     Dates: start: 20160409

REACTIONS (4)
  - Weight decreased [Unknown]
  - Malaise [Unknown]
  - Feeding disorder [Unknown]
  - Nausea [Unknown]
